FAERS Safety Report 9859193 (Version 1)
Quarter: 2014Q1

REPORT INFORMATION
  Report Type: Spontaneous
  Country: US (occurrence: US)
  Receive Date: 20140131
  Receipt Date: 20140131
  Transmission Date: 20141002
  Serious: Yes (Death, Other)
  Sender: FDA-Public Use
  Company Number: US-ACTELION-A-US2014-94038

PATIENT
  Age: 8 Year
  Sex: Female

DRUGS (2)
  1. TRACLEER [Suspect]
     Indication: PULMONARY ARTERIAL HYPERTENSION
     Dosage: UNK
     Route: 048
     Dates: start: 200708, end: 20140120
  2. SILDENAFIL [Concomitant]

REACTIONS (3)
  - Death [Fatal]
  - Cyanosis [Unknown]
  - Fatigue [Unknown]
